FAERS Safety Report 23430451 (Version 1)
Quarter: 2024Q1

REPORT INFORMATION
  Report Type: Spontaneous
  Country: BR (occurrence: BR)
  Receive Date: 20240123
  Receipt Date: 20240123
  Transmission Date: 20240410
  Serious: Yes (Disabling, Other)
  Sender: FDA-Public Use
  Company Number: BR-NOVOPROD-1163201

PATIENT
  Age: 710 Month
  Sex: Male

DRUGS (2)
  1. NOVOLIN R [Suspect]
     Active Substance: INSULIN HUMAN
     Indication: Diabetes mellitus
     Dosage: THREE TIMES A DAY
  2. NOVOLIN N [Suspect]
     Active Substance: INSULIN HUMAN
     Indication: Diabetes mellitus
     Dosage: THREE TIMES A DAY

REACTIONS (2)
  - Diabetic blindness [Unknown]
  - Leg amputation [Unknown]
